FAERS Safety Report 5732387-1 (Version None)
Quarter: 2008Q2

REPORT INFORMATION
  Report Type: 
  Country: None (occurrence: None)
  Receive Date: 20080508
  Receipt Date: 20080430
  Transmission Date: 20081010
  Serious: No
  Sender: FDA-Public Use
  Company Number: GB-BAXTER-2008BH004593

PATIENT
  Sex: Female

DRUGS (1)
  1. DEXTROSE 5% AND POTASSIUM CHLORIDE 0.075% IN PLASTIC CONTAINER [Suspect]
     Indication: DRUG USE FOR UNKNOWN INDICATION
     Dosage: DOSE UNIT:UNKNOWN
     Route: 042
     Dates: start: 20080429, end: 20080429

REACTIONS (4)
  - ANAPHYLACTOID REACTION [None]
  - INFUSION SITE PAIN [None]
  - PYREXIA [None]
  - RASH [None]
